FAERS Safety Report 9999801 (Version 2)
Quarter: 2014Q1

REPORT INFORMATION
  Report Type: Spontaneous
  Country: US (occurrence: US)
  Receive Date: 20140312
  Receipt Date: 20140317
  Transmission Date: 20141002
  Serious: Yes (Other)
  Sender: FDA-Public Use
  Company Number: US-MERCK-1403USA004991

PATIENT
  Sex: 0

DRUGS (1)
  1. ZETIA [Suspect]
     Dosage: 10 MG, UNK
     Route: 048

REACTIONS (1)
  - Obesity surgery [Unknown]
